FAERS Safety Report 14220432 (Version 1)
Quarter: 2017Q4

REPORT INFORMATION
  Report Type: Spontaneous
  Country: DE (occurrence: DE)
  Receive Date: 20171124
  Receipt Date: 20171124
  Transmission Date: 20180321
  Serious: Yes (Other)
  Sender: FDA-Public Use
  Company Number: GXKR2017DE005746

PATIENT
  Age: 24 Year
  Sex: Male
  Weight: 64 kg

DRUGS (11)
  1. MORPHIN [Concomitant]
     Active Substance: MORPHINE
     Dosage: 5 MG, BID (BOLUS)
     Route: 065
  2. DEXAMETHASONE. [Concomitant]
     Active Substance: DEXAMETHASONE
     Indication: PRODUCT USED FOR UNKNOWN INDICATION
     Dosage: 12 MG, UNK
     Route: 042
     Dates: end: 20171011
  3. LEVETIRACETAM. [Concomitant]
     Active Substance: LEVETIRACETAM
     Indication: PRODUCT USED FOR UNKNOWN INDICATION
     Dosage: 1.5 G, UNK
     Route: 048
     Dates: start: 20171012
  4. MORPHIN [Concomitant]
     Active Substance: MORPHINE
     Indication: PRODUCT USED FOR UNKNOWN INDICATION
     Dosage: 5 MG, UNK
     Route: 065
  5. METHADONE [Suspect]
     Active Substance: METHADONE HYDROCHLORIDE
     Indication: PAIN
     Dosage: 30 GTT, QD
     Route: 048
     Dates: start: 201709
  6. PANTOZOL [Concomitant]
     Active Substance: PANTOPRAZOLE SODIUM
     Indication: PRODUCT USED FOR UNKNOWN INDICATION
     Dosage: 40 MG, UNK
     Route: 042
     Dates: end: 20171013
  7. HYDROMORPHON AL [Concomitant]
     Indication: PRODUCT USED FOR UNKNOWN INDICATION
     Dosage: 1.3 G, TID
     Route: 065
  8. MIDAZOLAM [Concomitant]
     Active Substance: MIDAZOLAM HYDROCHLORIDE
     Indication: PRODUCT USED FOR UNKNOWN INDICATION
     Dosage: 2.5 MG, UNK
     Route: 065
  9. MIDAZOLAM [Concomitant]
     Active Substance: MIDAZOLAM HYDROCHLORIDE
     Dosage: 1 G, UNK
     Route: 065
  10. MORPHIN [Concomitant]
     Active Substance: MORPHINE
     Dosage: 1 MG, QD
     Route: 065
  11. PERFALGAN [Concomitant]
     Active Substance: ACETAMINOPHEN
     Indication: PRODUCT USED FOR UNKNOWN INDICATION
     Dosage: 1 G, UNK
     Route: 065

REACTIONS (1)
  - Inadequate analgesia [Recovered/Resolved]

NARRATIVE: CASE EVENT DATE: 20171011
